FAERS Safety Report 15275417 (Version 1)
Quarter: 2018Q3

REPORT INFORMATION
  Report Type: Spontaneous
  Country: US (occurrence: US)
  Receive Date: 20180814
  Receipt Date: 20180814
  Transmission Date: 20181010
  Serious: No
  Sender: FDA-Public Use
  Company Number: US-009507513-0905USA03772

PATIENT
  Age: 35 Year
  Sex: Female

DRUGS (5)
  1. EFAVIRENZ (+) EMTRICITABINE (+) TENOFOVIR DISOPROXIL FUMARATE [Concomitant]
     Active Substance: EFAVIRENZ\EMTRICITABINE\TENOFOVIR DISOPROXIL FUMARATE
     Route: 048
  2. EMTRICITABINE (+) TENOFOVIR DISOPROXIL FUMARATE [Concomitant]
     Active Substance: EMTRICITABINE\TENOFOVIR DISOPROXIL
     Route: 048
  3. ISENTRESS [Suspect]
     Active Substance: RALTEGRAVIR POTASSIUM
     Route: 048
  4. RITONAVIR. [Concomitant]
     Active Substance: RITONAVIR
     Route: 048
  5. ATAZANAVIR SULFATE. [Concomitant]
     Active Substance: ATAZANAVIR SULFATE
     Route: 048

REACTIONS (2)
  - Exposure during pregnancy [Recovered/Resolved]
  - No adverse event [Recovered/Resolved]
